FAERS Safety Report 8360095-X (Version None)
Quarter: 2012Q2

REPORT INFORMATION
  Report Type: 
  Country: None (occurrence: None)
  Receive Date: 20120515
  Receipt Date: 20110531
  Transmission Date: 20120825
  Serious: No
  Sender: FDA-Public Use
  Company Number: US-ALEXION-A201100773

PATIENT
  Sex: Male
  Weight: 100.68 kg

DRUGS (7)
  1. SOLIRIS [Suspect]
     Indication: PAROXYSMAL NOCTURNAL HAEMOGLOBINURIA
     Dosage: UNK, QWK
     Route: 042
     Dates: start: 20100827, end: 20100917
  2. VIAGRA [Concomitant]
     Indication: ERECTILE DYSFUNCTION
     Dosage: UNK
  3. SOLIRIS [Suspect]
     Dosage: 900 MG, Q2W
     Route: 042
     Dates: start: 20100101, end: 20110601
  4. CIALIS [Concomitant]
     Indication: ERECTILE DYSFUNCTION
     Dosage: UNK
  5. PREDNISONE [Concomitant]
     Dosage: UNK
  6. SOLIRIS [Suspect]
     Dosage: 1200 MG, Q2W
     Route: 042
     Dates: start: 20110601
  7. FOLIC ACID [Concomitant]
     Dosage: UNK

REACTIONS (10)
  - BLOOD URINE PRESENT [None]
  - BLOOD LACTATE DEHYDROGENASE INCREASED [None]
  - ABDOMINAL PAIN LOWER [None]
  - WEIGHT DECREASED [None]
  - DYSPHAGIA [None]
  - HAEMOLYSIS [None]
  - HEADACHE [None]
  - ASPARTATE AMINOTRANSFERASE INCREASED [None]
  - FLANK PAIN [None]
  - FATIGUE [None]
